FAERS Safety Report 15260344 (Version 1)
Quarter: 2018Q3

REPORT INFORMATION
  Report Type: Spontaneous
  Country: US (occurrence: US)
  Receive Date: 20180719
  Receipt Date: 20180719
  Transmission Date: 20181010
  Serious: No
  Sender: FDA-Public Use
  Company Number: None

PATIENT
  Age: 51 Year
  Sex: Female

DRUGS (1)
  1. COPAXONE [Suspect]
     Active Substance: GLATIRAMER ACETATE
     Dates: start: 20180718, end: 20180719

REACTIONS (6)
  - Nausea [None]
  - Dysphagia [None]
  - Headache [None]
  - Middle insomnia [None]
  - Diarrhoea [None]
  - Chills [None]

NARRATIVE: CASE EVENT DATE: 20180718
